FAERS Safety Report 15837819 (Version 1)
Quarter: 2019Q1

REPORT INFORMATION
  Report Type: Spontaneous
  Country: US (occurrence: US)
  Receive Date: 20190115
  Receipt Date: 20190115
  Transmission Date: 20190417
  Serious: Yes (Hospitalization)
  Sender: FDA-Public Use
  Company Number: None

PATIENT
  Age: 67 Year
  Sex: Male
  Weight: 119.75 kg

DRUGS (1)
  1. LIRAGLUTIDE [Suspect]
     Active Substance: LIRAGLUTIDE
     Indication: CHOLELITHIASIS
     Route: 058
     Dates: start: 20180215, end: 20180928

REACTIONS (4)
  - Hepatic enzyme increased [None]
  - Blood bilirubin increased [None]
  - Blood alkaline phosphatase increased [None]
  - Bile duct stone [None]

NARRATIVE: CASE EVENT DATE: 20180928
